FAERS Safety Report 24358860 (Version 1)
Quarter: 2024Q3

REPORT INFORMATION
  Report Type: Spontaneous
  Country: US (occurrence: None)
  Receive Date: 20240924
  Receipt Date: 20240924
  Transmission Date: 20241017
  Serious: No
  Sender: Public
  Company Number: None

PATIENT
  Sex: 0

DRUGS (1)
  1. TEBENTAFUSP-TEBN [Suspect]
     Active Substance: TEBENTAFUSP-TEBN

REACTIONS (4)
  - Erythema [None]
  - Muscle swelling [None]
  - Swelling [None]
  - Cytokine release syndrome [None]

NARRATIVE: CASE EVENT DATE: 20240923
